FAERS Safety Report 9129727 (Version 1)
Quarter: 2013Q1

REPORT INFORMATION
  Report Type: Spontaneous
  Country: FR (occurrence: FR)
  Receive Date: 20130228
  Receipt Date: 20130228
  Transmission Date: 20140127
  Serious: Yes (Other)
  Sender: FDA-Public Use
  Company Number: FR-JNJFOC-20130211607

PATIENT
  Sex: Female

DRUGS (11)
  1. XARELTO [Suspect]
     Indication: CEREBROVASCULAR ACCIDENT PROPHYLAXIS
     Route: 048
     Dates: start: 20121218, end: 20130108
  2. XARELTO [Suspect]
     Indication: ATRIAL FIBRILLATION
     Route: 048
     Dates: start: 20121218, end: 20130108
  3. FOLIC ACID [Concomitant]
     Route: 048
  4. PAROXETINE [Concomitant]
     Route: 048
  5. SINGULAIR [Concomitant]
     Route: 048
  6. NUCTALON [Concomitant]
     Route: 048
  7. ESOMEPRAZOLE [Concomitant]
     Route: 048
  8. NITRIDERM [Concomitant]
     Route: 062
  9. AMIODARONE [Concomitant]
     Route: 048
  10. FUROSEMIDE [Concomitant]
     Route: 048
  11. LEVOTHYROX [Concomitant]
     Route: 048

REACTIONS (3)
  - Anaemia [Recovered/Resolved]
  - Thrombocytopenia [Recovered/Resolved]
  - Rectal haemorrhage [Recovered/Resolved]
